FAERS Safety Report 6441973-5 (Version None)
Quarter: 2009Q4

REPORT INFORMATION
  Report Type: 
  Country: None (occurrence: None)
  Receive Date: 20091110
  Receipt Date: 20091009
  Transmission Date: 20100525
  Serious: No
  Sender: FDA-Public Use
  Company Number: 1000008732

PATIENT
  Age: 51 Year
  Sex: Female

DRUGS (12)
  1. SAVELLA [Suspect]
     Indication: FIBROMYALGIA
     Dosage: 12.5MG (12.5 MG, 1 IN 1 D),ORAL; 25 MG 912.5 MG, 2 IN 1 D), ORAL; 50 MG (25 MG, 2 IN 1 D), ORAL
     Route: 048
     Dates: start: 20090831, end: 20090831
  2. SAVELLA [Suspect]
     Indication: FIBROMYALGIA
     Dosage: 12.5MG (12.5 MG, 1 IN 1 D),ORAL; 25 MG 912.5 MG, 2 IN 1 D), ORAL; 50 MG (25 MG, 2 IN 1 D), ORAL
     Route: 048
     Dates: start: 20090901, end: 20090902
  3. SAVELLA [Suspect]
     Indication: FIBROMYALGIA
     Dosage: 12.5MG (12.5 MG, 1 IN 1 D),ORAL; 25 MG 912.5 MG, 2 IN 1 D), ORAL; 50 MG (25 MG, 2 IN 1 D), ORAL
     Route: 048
     Dates: start: 20090903, end: 20090906
  4. SAVELLA [Suspect]
     Indication: FIBROMYALGIA
     Dosage: 100 MG (50 MG, 2 IN 1 D), ORAL
     Route: 048
     Dates: start: 20090907, end: 20090910
  5. RISPERIDONE [Concomitant]
  6. CELEBREX [Concomitant]
  7. ADDERALL 10 [Concomitant]
  8. LAMICTAL [Concomitant]
  9. FLEXERIL [Concomitant]
  10. TEMAZEPAM [Concomitant]
  11. VICODIN [Concomitant]
  12. CLONAZEPAM [Concomitant]

REACTIONS (4)
  - BACK PAIN [None]
  - HEADACHE [None]
  - HOT FLUSH [None]
  - NAUSEA [None]
